FAERS Safety Report 13127945 (Version 1)
Quarter: 2017Q1

REPORT INFORMATION
  Report Type: Report from Study
  Country: US (occurrence: US)
  Receive Date: 20170118
  Receipt Date: 20170118
  Transmission Date: 20170428
  Serious: Yes (Other)
  Sender: FDA-Public Use
  Company Number: US-GILEAD-2017-0253628

PATIENT
  Age: 68 Year
  Sex: Male

DRUGS (14)
  1. LORATADINE. [Concomitant]
     Active Substance: LORATADINE
  2. IRON [Concomitant]
     Active Substance: IRON
  3. FUROSEMIDE. [Concomitant]
     Active Substance: FUROSEMIDE
  4. XARELTO [Concomitant]
     Active Substance: RIVAROXABAN
  5. OMEPRAZOLE. [Concomitant]
     Active Substance: OMEPRAZOLE
  6. FLUOCINONIDE. [Concomitant]
     Active Substance: FLUOCINONIDE
  7. VITAMIN D                          /00107901/ [Concomitant]
     Active Substance: ERGOCALCIFEROL
  8. AMBRISENTAN [Suspect]
     Active Substance: AMBRISENTAN
     Indication: PULMONARY ARTERIAL HYPERTENSION
     Dosage: 10 MG, QD
     Route: 065
     Dates: start: 20150626
  9. ADCIRCA [Suspect]
     Active Substance: TADALAFIL
     Indication: PRODUCT USED FOR UNKNOWN INDICATION
     Route: 065
  10. NASONEX [Concomitant]
     Active Substance: MOMETASONE FUROATE
  11. LISINOPRIL. [Concomitant]
     Active Substance: LISINOPRIL
  12. SOTALOL. [Concomitant]
     Active Substance: SOTALOL
  13. ASPIRIN 81 [Concomitant]
     Active Substance: ASPIRIN
  14. POTASSIUM CHLORIDE. [Concomitant]
     Active Substance: POTASSIUM CHLORIDE

REACTIONS (1)
  - Cardiac pacemaker insertion [Recovered/Resolved]

NARRATIVE: CASE EVENT DATE: 20170110
